FAERS Safety Report 16873902 (Version 1)
Quarter: 2019Q4

REPORT INFORMATION
  Report Type: Spontaneous
  Country: US (occurrence: US)
  Receive Date: 20191001
  Receipt Date: 20191001
  Transmission Date: 20200122
  Serious: Yes (Hospitalization, Other)
  Sender: FDA-Public Use
  Company Number: US-SCIEGEN PHARMACEUTICALS INC-2019SCILIT00272

PATIENT
  Age: 65 Year
  Sex: Female

DRUGS (3)
  1. ATORVASTATIN CALCIUM. [Suspect]
     Active Substance: ATORVASTATIN CALCIUM
  2. PREDNISONE. [Interacting]
     Active Substance: PREDNISONE
  3. AZATHIOPRINE. [Interacting]
     Active Substance: AZATHIOPRINE

REACTIONS (1)
  - Autoimmune hepatitis [Recovering/Resolving]
